FAERS Safety Report 4599638-0 (Version None)
Quarter: 2005Q1

REPORT INFORMATION
  Report Type: 
  Country: None (occurrence: None)
  Receive Date: 20050303
  Receipt Date: 20050131
  Transmission Date: 20050727
  Serious: Yes (Hospitalization, Other)
  Sender: FDA-Public Use
  Company Number: US_0409105404

PATIENT
  Age: 26 Year
  Sex: Male
  Weight: 93 kg

DRUGS (10)
  1. ZYPREXA [Suspect]
     Indication: SCHIZOPHRENIA
     Dosage: 20 MG/1 AT BEDTIME
     Dates: start: 19980101
  2. ISONIAZID [Concomitant]
  3. PAROXETINE HCL [Concomitant]
  4. IBURPOFEN (IBUPROFEN) [Concomitant]
  5. AMOXICILLIN [Concomitant]
  6. VITAMINS B-6 [Concomitant]
  7. NICODERM [Concomitant]
  8. GEODON [Concomitant]
  9. LOTRISONE [Concomitant]
  10. WELLBUTRIN [Concomitant]

REACTIONS (83)
  - ABDOMINAL HERNIA [None]
  - ABDOMINAL PAIN [None]
  - ABDOMINAL PAIN UPPER [None]
  - ABDOMINAL TENDERNESS [None]
  - ANAESTHESIA [None]
  - ANION GAP INCREASED [None]
  - ANXIETY [None]
  - ASTHENIA [None]
  - BACK PAIN [None]
  - BLOOD GASES ABNORMAL [None]
  - BLOOD GLUCOSE DECREASED [None]
  - BLOOD OSMOLARITY INCREASED [None]
  - BLOOD PH DECREASED [None]
  - BLOOD SODIUM DECREASED [None]
  - CARPAL TUNNEL SYNDROME [None]
  - CHOKING SENSATION [None]
  - CHROMATURIA [None]
  - CONFUSIONAL STATE [None]
  - CONSTIPATION [None]
  - COUGH [None]
  - DECREASED APPETITE [None]
  - DEHYDRATION [None]
  - DEPRESSED LEVEL OF CONSCIOUSNESS [None]
  - DIABETES MELLITUS [None]
  - DIABETIC KETOACIDOSIS [None]
  - DIARRHOEA [None]
  - DIFFICULTY IN WALKING [None]
  - DISTURBANCE IN ATTENTION [None]
  - DIZZINESS [None]
  - DRUG EFFECT DECREASED [None]
  - DRUG INEFFECTIVE [None]
  - DRY SKIN [None]
  - DYSLIPIDAEMIA [None]
  - DYSPNOEA [None]
  - EMOTIONAL DISTRESS [None]
  - EYE PAIN [None]
  - FATIGUE [None]
  - FLATULENCE [None]
  - FLUID RETENTION [None]
  - HEADACHE [None]
  - HEPATOMEGALY [None]
  - HYPERHIDROSIS [None]
  - HYPOAESTHESIA [None]
  - HYPOGLYCAEMIA [None]
  - JOINT STIFFNESS [None]
  - LOSS OF CONSCIOUSNESS [None]
  - MALARIA [None]
  - MUSCLE STRAIN [None]
  - MUSCLE TWITCHING [None]
  - MUSCULOSKELETAL STIFFNESS [None]
  - NASAL CONGESTION [None]
  - NAUSEA [None]
  - NECK PAIN [None]
  - NERVE COMPRESSION [None]
  - NERVE INJURY [None]
  - ODYNOPHAGIA [None]
  - ORAL SOFT TISSUE DISORDER [None]
  - PAIN [None]
  - PCO2 DECREASED [None]
  - PHARYNGOLARYNGEAL PAIN [None]
  - POLYDIPSIA [None]
  - POLYURIA [None]
  - POOR PERIPHERAL CIRCULATION [None]
  - PRURITUS [None]
  - PYREXIA [None]
  - RENAL FAILURE CHRONIC [None]
  - RETICULOCYTE COUNT INCREASED [None]
  - ROAD TRAFFIC ACCIDENT [None]
  - SINUSITIS [None]
  - SKIN CHAPPED [None]
  - SLEEP APNOEA SYNDROME [None]
  - SNEEZING [None]
  - SNORING [None]
  - SUICIDAL IDEATION [None]
  - TESTICULAR PAIN [None]
  - THINKING ABNORMAL [None]
  - TINEA PEDIS [None]
  - TREATMENT NONCOMPLIANCE [None]
  - TREMOR [None]
  - TUBERCULOSIS [None]
  - VISION BLURRED [None]
  - WEIGHT DECREASED [None]
  - WEIGHT INCREASED [None]
